FAERS Safety Report 23683280 (Version 1)
Quarter: 2024Q1

REPORT INFORMATION
  Report Type: Spontaneous
  Country: NI (occurrence: NI)
  Receive Date: 20240328
  Receipt Date: 20240328
  Transmission Date: 20240410
  Serious: Yes (Other)
  Sender: FDA-Public Use
  Company Number: NI-BAYER-2024A037286

PATIENT
  Age: 58 Year
  Sex: Female

DRUGS (1)
  1. ULTRAVIST [Suspect]
     Active Substance: IOPROMIDE
     Indication: Computerised tomogram
     Dosage: UNK, ONCE

REACTIONS (5)
  - Administration site pain [None]
  - Peripheral swelling [None]
  - Administration site joint movement impairment [None]
  - Incorrect dose administered [None]
  - Adverse event [None]
